FAERS Safety Report 6390124-4 (Version None)
Quarter: 2009Q4

REPORT INFORMATION
  Report Type: 
  Country: None (occurrence: None)
  Receive Date: 20091006
  Receipt Date: 20090925
  Transmission Date: 20100525
  Serious: Yes (Hospitalization)
  Sender: FDA-Public Use
  Company Number: JP-NOVOPROD-292146

PATIENT
  Sex: Female

DRUGS (4)
  1. NOVORAPID CHU FLEXPEN [Suspect]
     Indication: TYPE 1 DIABETES MELLITUS
     Dates: start: 20081111
  2. LOSARTAN POTASSIUM [Concomitant]
  3. ROSUVASTATIN CALCIUM [Concomitant]
  4. LANTUS [Concomitant]

REACTIONS (2)
  - HYPOGLYCAEMIA [None]
  - LIVER DISORDER [None]
